FAERS Safety Report 25225597 (Version 2)
Quarter: 2025Q4

REPORT INFORMATION
  Report Type: Spontaneous
  Country: US (occurrence: US)
  Receive Date: 20250422
  Receipt Date: 20251118
  Transmission Date: 20260117
  Serious: Yes (Hospitalization)
  Sender: PFIZER
  Company Number: US-PFIZER INC-PV202500046979

PATIENT
  Age: 67 Year
  Sex: Female

DRUGS (1)
  1. NURTEC ODT [Suspect]
     Active Substance: RIMEGEPANT SULFATE
     Dosage: 75 MG, ALTERNATE DAY (TAKE ONE TABLET BY MOUTH EVERY OTHER DAY)
     Route: 048

REACTIONS (3)
  - Seizure [Recovered/Resolved]
  - Fall [Unknown]
  - Loss of personal independence in daily activities [Unknown]
